FAERS Safety Report 15567559 (Version 1)
Quarter: 2018Q4

REPORT INFORMATION
  Report Type: Spontaneous
  Country: FR (occurrence: FR)
  Receive Date: 20181030
  Receipt Date: 20181030
  Transmission Date: 20190205
  Serious: Yes (Hospitalization, Other)
  Sender: FDA-Public Use
  Company Number: FR-PFIZER INC-2018439128

PATIENT
  Age: 31 Year
  Sex: Female
  Weight: 38 kg

DRUGS (4)
  1. AZITHROMYCIN ANHYDROUS. [Suspect]
     Active Substance: AZITHROMYCIN ANHYDROUS
     Indication: PHARYNGITIS
     Dosage: 250 MG, 1X/DAY
     Route: 048
     Dates: start: 20180917, end: 20180920
  2. CEFPODOXIME [Suspect]
     Active Substance: CEFPODOXIME
     Indication: PHARYNGITIS
     Dosage: 200 MG, 1X/DAY
     Route: 048
     Dates: start: 20180920, end: 20180921
  3. NAPROXEN (NAPROXEN SODIUM) [Suspect]
     Active Substance: NAPROXEN SODIUM
     Indication: PHARYNGITIS
     Dosage: UNK
     Route: 048
     Dates: start: 20180917, end: 20180921
  4. MABTHERA [Suspect]
     Active Substance: RITUXIMAB
     Indication: SYSTEMIC LUPUS ERYTHEMATOSUS
     Dosage: 1000 MG, UNK
     Route: 041
     Dates: start: 20180605, end: 20180605

REACTIONS (1)
  - Agranulocytosis [Recovered/Resolved]

NARRATIVE: CASE EVENT DATE: 20180921
